FAERS Safety Report 9771398 (Version 3)
Quarter: 2014Q1

REPORT INFORMATION
  Report Type: Report from Study
  Country: CN (occurrence: CN)
  Receive Date: 20131219
  Receipt Date: 20140110
  Transmission Date: 20141002
  Serious: Yes (Other)
  Sender: FDA-Public Use
  Company Number: CN-ROCHE-1321373

PATIENT
  Age: 66 Year
  Sex: Female
  Weight: 70 kg

DRUGS (2)
  1. ALTEPLASE [Suspect]
     Indication: BRAIN STEM INFARCTION
     Dosage: TOTAL DOSE WAS 60MG/70KG, WITH 7 MG ADMINISTERED INITIALLY VIA RAPID INTRAVENOUS INJECTION IN UNDER
     Route: 042
  2. ALTEPLASE [Suspect]
     Dosage: THE REMAINING DOSE BEING ADMINISTERED VIA INTRAVENOUS DRIP WITHIN 1 HOUR
     Route: 041

REACTIONS (8)
  - Cerebrovascular disorder [Unknown]
  - Cerebral infarction [Unknown]
  - Muscular weakness [Unknown]
  - Dizziness [Unknown]
  - Nausea [Unknown]
  - Vomiting [Unknown]
  - Upper gastrointestinal haemorrhage [Recovered/Resolved]
  - Blood pressure increased [Unknown]
